FAERS Safety Report 19202358 (Version 2)
Quarter: 2021Q2

REPORT INFORMATION
  Report Type: Spontaneous
  Country: NL (occurrence: NL)
  Receive Date: 20210430
  Receipt Date: 20210604
  Transmission Date: 20210717
  Serious: Yes (Other)
  Sender: FDA-Public Use
  Company Number: NL-TEVA-2021-NL-1905895

PATIENT
  Sex: Female

DRUGS (3)
  1. PANTOPRAZOL TABLET MSR 40MG / BRAND NAME NOT SPECIFIED [Suspect]
     Active Substance: PANTOPRAZOLE
     Indication: HELICOBACTER INFECTION
     Dosage: 2D1T 1W THEN 1D1T, 40 MG
     Route: 065
     Dates: start: 20210302, end: 20210408
  2. LEVOTHYROXINE TABLET 100UG (ZUUR) / THYRAX DUOTAB TABLET 0,100MG [Interacting]
     Active Substance: LEVOTHYROXINE SODIUM
     Indication: THYROID DISORDER
     Dosage: 100 MCG, THERAPY START DATE: NASK, THERAPY END DATE: ASKU?LEVOTHYROXINE TABLET 100UG (ZUUR) / THYRAX
  3. LEVOTHYROXINE TABLET 25UG (ZUUR) / THYRAX DUOTAB TABLET 0,025MG [Interacting]
     Active Substance: LEVOTHYROXINE SODIUM
     Indication: THYROID DISORDER
     Dosage: 25 MCG,  THERAPY START DATE: NASK, THERAPY END DATE: ASKU?LEVOTHYROXINE TABLET 25UG (ZUUR) / THYRAX

REACTIONS (2)
  - Hypothyroidism [Recovering/Resolving]
  - Drug interaction [Unknown]
